FAERS Safety Report 6399674-8 (Version None)
Quarter: 2009Q4

REPORT INFORMATION
  Report Type: 
  Country: None (occurrence: None)
  Receive Date: 20091014
  Receipt Date: 20091005
  Transmission Date: 20100525
  Serious: Yes (Hospitalization)
  Sender: FDA-Public Use
  Company Number: GB-ASTRAZENECA-2009SE12384

PATIENT
  Age: 72 Year
  Sex: Male

DRUGS (15)
  1. SYMBICORT [Suspect]
     Indication: ASTHMA
     Dosage: 200/6 MCG, NEW PACK
     Route: 055
     Dates: start: 20060601, end: 20090909
  2. SYMBICORT [Suspect]
     Indication: CHRONIC OBSTRUCTIVE PULMONARY DISEASE
     Dosage: 200/6 MCG, NEW PACK
     Route: 055
     Dates: start: 20060601, end: 20090909
  3. RAMIPRIL [Concomitant]
     Route: 048
  4. AMLODIPINE [Concomitant]
  5. BETAHISTINE [Concomitant]
  6. CO-AMILOFRUSE [Concomitant]
  7. CO-BENELDOPA [Concomitant]
  8. DOMPERIDONE [Concomitant]
  9. DUTASTERIDE [Concomitant]
  10. LANSOPRAZOLE [Concomitant]
  11. MIRTAZAPINE [Concomitant]
  12. RASAGILINE [Concomitant]
  13. SULFASALAZINE [Concomitant]
  14. TAMSULOSIN [Concomitant]
  15. TIOTROPIUM BROMIDE [Concomitant]
     Route: 055

REACTIONS (2)
  - DYSPNOEA [None]
  - HYPERSENSITIVITY [None]
